FAERS Safety Report 7560811-0 (Version None)
Quarter: 2011Q2

REPORT INFORMATION
  Report Type: 
  Country: None (occurrence: None)
  Receive Date: 20110621
  Receipt Date: 20110607
  Transmission Date: 20111010
  Serious: Yes (Life-Threatening, Hospitalization)
  Sender: FDA-Public Use
  Company Number: US-ROCHE-783600

PATIENT

DRUGS (4)
  1. BEVACIZUMAB [Suspect]
     Indication: NON-SMALL CELL LUNG CANCER
     Dosage: CYCLE= 21 DAYS: (CYCLES: 01-06 AND 7+)
     Route: 042
     Dates: start: 20101012
  2. CARBOPLATIN [Suspect]
     Indication: NON-SMALL CELL LUNG CANCER
     Dosage: AUC=06 OVER 30 MIN ON DAY 01; CYCLE= 21 DAYS (CYCLES: 01-06)
     Route: 042
     Dates: start: 20101012
  3. PACLITAXEL [Suspect]
     Indication: NON-SMALL CELL LUNG CANCER
     Dosage: OVER 03 HOURS ON DAY 01; CYCLE= 21 DAYS (CYCLES: 01-06)
     Route: 042
     Dates: start: 20101012
  4. IMC-A12 [Suspect]
     Indication: NON-SMALL CELL LUNG CANCER
     Dosage: CYCLE= 21 DAYS; (CYCLES 01-06 AND 7+); OVER 01 HOUR ON DAYS 01, 08 AND 15
     Route: 042
     Dates: start: 20101012

REACTIONS (5)
  - FATIGUE [None]
  - PLATELET COUNT DECREASED [None]
  - CONFUSIONAL STATE [None]
  - NEUTROPHIL COUNT DECREASED [None]
  - DYSPNOEA [None]
